FAERS Safety Report 4385517-0 (Version None)
Quarter: 2004Q2

REPORT INFORMATION
  Report Type: 
  Country: None (occurrence: None)
  Receive Date: 20040622
  Receipt Date: 20040609
  Transmission Date: 20050107
  Serious: Yes (Hospitalization, Other)
  Sender: FDA-Public Use
  Company Number: HQWYE246616MAY03

PATIENT
  Age: 46 Year
  Sex: Male
  Weight: 99.88 kg

DRUGS (10)
  1. MYLOTARG [Suspect]
     Indication: ACUTE MYELOID LEUKAEMIA
     Dosage: 9 MG/M^2 1X PER 1 DAY, INRAVENOUS
     Route: 042
     Dates: start: 20030422, end: 20030422
  2. MYLOTARG [Suspect]
     Indication: ACUTE MYELOID LEUKAEMIA
     Dosage: 9 MG/M^2 1X PER 1 DAY, INRAVENOUS
     Route: 042
     Dates: start: 20030506, end: 20030506
  3. NEUPOGEN (FILGRASTIM) [Concomitant]
  4. ACYCLOVIR [Concomitant]
  5. LEXAPRO [Concomitant]
  6. DILAUDID [Concomitant]
  7. VALIUM [Concomitant]
  8. CIPRO [Concomitant]
  9. SPORANOX [Concomitant]
  10. PREVACID [Concomitant]

REACTIONS (7)
  - ACINETOBACTER INFECTION [None]
  - BACTERIAL INFECTION [None]
  - FEBRILE NEUTROPENIA [None]
  - GALLBLADDER DISORDER [None]
  - NEUTROPENIC SEPSIS [None]
  - PANCYTOPENIA [None]
  - VENOOCCLUSIVE LIVER DISEASE [None]
